FAERS Safety Report 24277632 (Version 1)
Quarter: 2024Q3

REPORT INFORMATION
  Report Type: Spontaneous
  Country: US (occurrence: US)
  Receive Date: 20240903
  Receipt Date: 20240903
  Transmission Date: 20241016
  Serious: No
  Sender: LEXICON PHARMACEUTICALS
  Company Number: US-LEX-000421

PATIENT
  Sex: Male

DRUGS (1)
  1. INPEFA [Suspect]
     Active Substance: SOTAGLIFLOZIN
     Indication: Intracardiac pressure increased
     Dosage: IN THE MORNING
     Route: 048
     Dates: end: 20240803

REACTIONS (1)
  - Pollakiuria [Recovered/Resolved]
